FAERS Safety Report 14346218 (Version 12)
Quarter: 2018Q2

REPORT INFORMATION
  Report Type: Spontaneous
  Country: US (occurrence: US)
  Receive Date: 20180103
  Receipt Date: 20180612
  Transmission Date: 20180711
  Serious: Yes (Hospitalization, Other)
  Sender: FDA-Public Use
  Company Number: US-PFIZER INC-2017553965

PATIENT
  Age: 67 Year
  Sex: Male
  Weight: 90.24 kg

DRUGS (9)
  1. SUTENT [Suspect]
     Active Substance: SUNITINIB MALATE
     Dosage: 50 MG, CYCLIC [2 WEEKS ON/1 WEEK OFF]
     Dates: start: 20180410
  2. LIPITOR [Concomitant]
     Active Substance: ATORVASTATIN CALCIUM
     Dosage: UNK
  3. METFORMIN [Concomitant]
     Active Substance: METFORMIN HYDROCHLORIDE
     Dosage: UNK
  4. SUTENT [Suspect]
     Active Substance: SUNITINIB MALATE
     Dosage: 50 MG, CYCLIC [28 DAYS ON/14 DAYS OFF]
     Dates: start: 20180122, end: 20180208
  5. LIDOCAINE. [Concomitant]
     Active Substance: LIDOCAINE
     Dosage: UNK
  6. SUTENT [Suspect]
     Active Substance: SUNITINIB MALATE
     Dosage: 50 MG, CYCLIC [DAILY FOR 2 WEEKS ON/1 WEEK OFF]
     Dates: start: 20180219
  7. SUTENT [Suspect]
     Active Substance: SUNITINIB MALATE
     Indication: RENAL CANCER
     Dosage: 50 MG, CYCLIC [28 DAYS ON/14 DAYS OFF]
     Dates: start: 20171211, end: 20171231
  8. SUTENT [Suspect]
     Active Substance: SUNITINIB MALATE
     Dosage: 37.5 MG, CYCLIC (2 WEEKS ON/1 WEEK OFF)
     Dates: start: 20180410, end: 20180513
  9. PROTONIX [Concomitant]
     Active Substance: PANTOPRAZOLE SODIUM
     Dosage: UNK, DAILY

REACTIONS (25)
  - Tongue discomfort [Recovered/Resolved]
  - Oropharyngeal pain [Recovered/Resolved]
  - Sputum increased [Recovered/Resolved]
  - Cough [Recovered/Resolved]
  - Ageusia [Recovered/Resolved]
  - Swollen tongue [Recovered/Resolved]
  - Stomatitis [Recovered/Resolved]
  - Dysgeusia [Recovered/Resolved]
  - Pneumonia [Recovered/Resolved]
  - Dry mouth [Recovered/Resolved]
  - Asthenia [Recovering/Resolving]
  - Dizziness [Unknown]
  - Hypotension [Unknown]
  - Pyrexia [Recovered/Resolved]
  - Dysphagia [Recovered/Resolved]
  - Dehydration [Unknown]
  - Insomnia [Unknown]
  - Decreased appetite [Recovered/Resolved]
  - Oral pain [Recovered/Resolved]
  - Tongue erythema [Recovered/Resolved]
  - Fatigue [Recovered/Resolved]
  - Blood glucose decreased [Unknown]
  - Diarrhoea [Not Recovered/Not Resolved]
  - Glossodynia [Recovered/Resolved]
  - Odynophagia [Recovered/Resolved]

NARRATIVE: CASE EVENT DATE: 2017
